FAERS Safety Report 18754083 (Version 1)
Quarter: 2021Q1

REPORT INFORMATION
  Report Type: Spontaneous
  Country: GB (occurrence: GB)
  Receive Date: 20210119
  Receipt Date: 20210119
  Transmission Date: 20210419
  Serious: Yes (Life-Threatening, Hospitalization, Other)
  Sender: FDA-Public Use
  Company Number: IS-ALVOGEN-2021-ALVOGEN-116071

PATIENT
  Age: 53 Year
  Sex: Male

DRUGS (3)
  1. OXYCODONE [Suspect]
     Active Substance: OXYCODONE
     Indication: SUICIDE ATTEMPT
  2. TRAMADOL. [Suspect]
     Active Substance: TRAMADOL
     Indication: SUICIDE ATTEMPT
  3. MORPHINE [Suspect]
     Active Substance: MORPHINE
     Indication: SUICIDE ATTEMPT
     Route: 048

REACTIONS (4)
  - Hypotension [Recovered/Resolved]
  - Respiratory rate decreased [Recovered/Resolved]
  - Depressed level of consciousness [Recovered/Resolved]
  - Obstructive airways disorder [Recovered/Resolved]
